FAERS Safety Report 16317573 (Version 1)
Quarter: 2019Q2

REPORT INFORMATION
  Report Type: Other
  Country: DE (occurrence: DE)
  Receive Date: 20190516
  Receipt Date: 20190516
  Transmission Date: 20190711
  Serious: No
  Sender: FDA-Public Use
  Company Number: DE-LUPIN PHARMACEUTICALS INC.-2018-03111

PATIENT
  Sex: Male
  Weight: 70 kg

DRUGS (6)
  1. CARBAMAZEPIN [Interacting]
     Active Substance: CARBAMAZEPINE
     Indication: BIPOLAR DISORDER
     Dosage: 400 MG, QD
     Route: 048
     Dates: start: 201712
  2. PIPAMPERON [Concomitant]
     Active Substance: PIPAMPERONE HYDROCHLORIDE
     Indication: BIPOLAR DISORDER
     Dosage: 40 MG, BID (12 HOURS)
     Route: 065
  3. QUETIAPINE. [Suspect]
     Active Substance: QUETIAPINE
     Indication: BIPOLAR DISORDER
     Dosage: 800 MG, QD
     Route: 048
     Dates: start: 2015
  4. QUETIAPINE. [Interacting]
     Active Substance: QUETIAPINE
     Indication: ANXIETY DISORDER
  5. CARBAMAZEPIN [Interacting]
     Active Substance: CARBAMAZEPINE
     Indication: EPILEPSY
  6. PIPAMPERON [Concomitant]
     Active Substance: PIPAMPERONE HYDROCHLORIDE
     Dosage: 40 MG, 12 HOUR

REACTIONS (6)
  - Restlessness [Not Recovered/Not Resolved]
  - Drug interaction [Unknown]
  - Dyspepsia [Unknown]
  - Extrapyramidal disorder [Not Recovered/Not Resolved]
  - Agitation [Not Recovered/Not Resolved]
  - Weight decreased [Not Recovered/Not Resolved]

NARRATIVE: CASE EVENT DATE: 201801
